FAERS Safety Report 5895612-2 (Version None)
Quarter: 2008Q3

REPORT INFORMATION
  Report Type: 
  Country: None (occurrence: None)
  Receive Date: 20080828
  Receipt Date: 20070126
  Transmission Date: 20090109
  Serious: Yes (Other)
  Sender: FDA-Public Use
  Company Number: 152225USA

PATIENT
  Age: 18 Year
  Sex: Female
  Weight: 74.8435 kg

DRUGS (4)
  1. CARBAMAZEPINE [Suspect]
     Indication: COMPLEX PARTIAL SEIZURES
     Dosage: 600 MG (200 MG,1 IN 8 HR),ORAL
     Route: 047
     Dates: start: 20061006, end: 20070125
  2. QUETIAPINE FUMARATE [Suspect]
     Indication: SCHIZOPHRENIA
     Dosage: 800MG IN PM, 8AM 100MG, 12 N 100MG,ORAL
     Route: 048
     Dates: start: 20020101
  3. CLONAZEPAM [Concomitant]
  4. PERPHENAZINE [Concomitant]

REACTIONS (1)
  - GRANULOCYTOPENIA [None]
